FAERS Safety Report 8265760-0 (Version None)
Quarter: 2012Q2

REPORT INFORMATION
  Report Type: 
  Country: None (occurrence: None)
  Receive Date: 20120406
  Receipt Date: 20120326
  Transmission Date: 20120825
  Serious: Yes (Other)
  Sender: FDA-Public Use
  Company Number: JP-ROCHE-1054667

PATIENT
  Sex: Female

DRUGS (2)
  1. ORENCIA [Concomitant]
  2. ACTEMRA [Suspect]
     Indication: RHEUMATOID ARTHRITIS
     Route: 041
     Dates: start: 20101105, end: 20111111

REACTIONS (2)
  - ANAEMIA [None]
  - MYELODYSPLASTIC SYNDROME [None]
